FAERS Safety Report 11222388 (Version 2)
Quarter: 2015Q3

REPORT INFORMATION
  Report Type: Spontaneous
  Country: CO (occurrence: CO)
  Receive Date: 20150626
  Receipt Date: 20150729
  Transmission Date: 20151125
  Serious: Yes (Hospitalization)
  Sender: FDA-Public Use
  Company Number: CO-JNJFOC-20150616355

PATIENT
  Age: 48 Year
  Sex: Male
  Weight: 105 kg

DRUGS (1)
  1. STELARA [Suspect]
     Active Substance: USTEKINUMAB
     Indication: PSORIASIS
     Route: 058
     Dates: start: 20141007

REACTIONS (8)
  - Weight decreased [Unknown]
  - Haematemesis [Recovered/Resolved with Sequelae]
  - Acute myocardial infarction [Recovered/Resolved with Sequelae]
  - Gastric haemorrhage [Recovered/Resolved with Sequelae]
  - Back pain [Unknown]
  - Fatigue [Unknown]
  - Hypertension [Recovered/Resolved with Sequelae]
  - Vertigo [Unknown]

NARRATIVE: CASE EVENT DATE: 2015
